FAERS Safety Report 6032979-9 (Version None)
Quarter: 2009Q1

REPORT INFORMATION
  Report Type: 
  Country: None (occurrence: None)
  Receive Date: 20090109
  Receipt Date: 20090108
  Transmission Date: 20090719
  Serious: Yes (Hospitalization)
  Sender: FDA-Public Use
  Company Number: A0762743A

PATIENT
  Age: 76 Year
  Sex: Male
  Weight: 74 kg

DRUGS (4)
  1. SERETIDE [Suspect]
     Indication: RESPIRATORY DISORDER
     Route: 055
     Dates: start: 20081202, end: 20081219
  2. NAC DIAGNOSTIC REAGENT [Concomitant]
     Dates: start: 20080901, end: 20081201
  3. TOLTERODINE TARTRATE [Concomitant]
     Dates: start: 20080905, end: 20081219
  4. MULTI-VITAMINS [Concomitant]
     Dates: start: 20080905, end: 20081219

REACTIONS (1)
  - RESPIRATORY DISORDER [None]
